FAERS Safety Report 21798494 (Version 1)
Quarter: 2022Q4

REPORT INFORMATION
  Report Type: Spontaneous
  Country: DE (occurrence: DE)
  Receive Date: 20221230
  Receipt Date: 20221230
  Transmission Date: 20230113
  Serious: Yes (Other)
  Sender: FDA-Public Use
  Company Number: DE-ALKEM LABORATORIES LIMITED-DE-ALKEM-2022-12744

PATIENT
  Age: 48 Year
  Sex: Male
  Weight: 153 kg

DRUGS (1)
  1. DABIGATRAN ETEXILATE MESYLATE [Suspect]
     Active Substance: DABIGATRAN ETEXILATE MESYLATE
     Indication: Product used for unknown indication
     Dosage: 150 MILLIGRAM, BID (TWICE DAILY)
     Route: 065

REACTIONS (3)
  - Ischaemic stroke [Unknown]
  - Contraindication to medical treatment [Unknown]
  - Drug ineffective [Unknown]
